FAERS Safety Report 24720523 (Version 2)
Quarter: 2024Q4

REPORT INFORMATION
  Report Type: Spontaneous
  Country: US (occurrence: US)
  Receive Date: 20241211
  Receipt Date: 20241211
  Transmission Date: 20250115
  Serious: Yes (Hospitalization, Other)
  Sender: ALEXION PHARMACEUTICALS
  Company Number: US-AstraZeneca-CH-00726779A

PATIENT
  Weight: 68 kg

DRUGS (18)
  1. TAGRISSO [Suspect]
     Active Substance: OSIMERTINIB
     Dosage: 80 MILLIGRAM, QD
     Route: 065
  2. TAGRISSO [Suspect]
     Active Substance: OSIMERTINIB
     Dosage: 80 MILLIGRAM, QD
     Route: 065
  3. TAGRISSO [Suspect]
     Active Substance: OSIMERTINIB
     Dosage: 80 MILLIGRAM, QD
     Route: 065
  4. TAGRISSO [Suspect]
     Active Substance: OSIMERTINIB
     Dosage: 80 MILLIGRAM, QD
     Route: 065
  5. TAGRISSO [Suspect]
     Active Substance: OSIMERTINIB
     Dosage: 160 MILLIGRAM
     Route: 065
  6. TAGRISSO [Suspect]
     Active Substance: OSIMERTINIB
     Dosage: 160 MILLIGRAM
     Route: 065
  7. TAGRISSO [Suspect]
     Active Substance: OSIMERTINIB
     Dosage: 160 MILLIGRAM
     Route: 065
  8. TAGRISSO [Suspect]
     Active Substance: OSIMERTINIB
     Dosage: 160 MILLIGRAM
     Route: 065
  9. TRASTUZUMAB DERUXTECAN [Suspect]
     Active Substance: TRASTUZUMAB DERUXTECAN
     Dosage: 300 MILLIGRAM
     Route: 065
  10. TRASTUZUMAB DERUXTECAN [Suspect]
     Active Substance: TRASTUZUMAB DERUXTECAN
     Dosage: 300 MILLIGRAM
     Route: 065
  11. TRASTUZUMAB DERUXTECAN [Suspect]
     Active Substance: TRASTUZUMAB DERUXTECAN
     Dosage: 300 MILLIGRAM
     Route: 065
  12. TRASTUZUMAB DERUXTECAN [Suspect]
     Active Substance: TRASTUZUMAB DERUXTECAN
     Dosage: 300 MILLIGRAM
     Route: 065
  13. DOCETAXEL [Concomitant]
     Active Substance: DOCETAXEL
     Route: 065
  14. DOCETAXEL [Concomitant]
     Active Substance: DOCETAXEL
     Route: 065
  15. RAMUCIRUMAB [Concomitant]
     Active Substance: RAMUCIRUMAB
     Route: 065
  16. RAMUCIRUMAB [Concomitant]
     Active Substance: RAMUCIRUMAB
     Route: 065
  17. AFATINIB [Concomitant]
     Active Substance: AFATINIB
     Dosage: 40 MILLIGRAM, QD
     Route: 065
  18. AFATINIB [Concomitant]
     Active Substance: AFATINIB
     Dosage: 40 MILLIGRAM, QD
     Route: 065

REACTIONS (5)
  - Malignant neoplasm progression [Unknown]
  - Pyrexia [Unknown]
  - Pleural effusion [Unknown]
  - Musculoskeletal pain [Unknown]
  - Cough [Unknown]
